FAERS Safety Report 8910655 (Version 1)
Quarter: 2012Q4

REPORT INFORMATION
  Report Type: Spontaneous
  Country: BA (occurrence: None)
  Receive Date: 20121108
  Receipt Date: 20121108
  Transmission Date: 20130627
  Serious: Yes (Hospitalization)
  Sender: FDA-Public Use
  Company Number: HALO20120009

PATIENT
  Age: 58 Year
  Sex: Female

DRUGS (2)
  1. HALOPERIDOL [Suspect]
     Indication: SCHIZOPHRENIA, PARANOID TYPE
     Dates: start: 1999
  2. THIORIDAZINE [Suspect]
     Indication: SCHIZOPHRENIA, PARANOID TYPE
     Dates: start: 1999

REACTIONS (5)
  - Blood pressure systolic inspiratory decreased [None]
  - Pulmonary embolism [None]
  - Blood prolactin increased [None]
  - International normalised ratio increased [None]
  - Blood pressure diastolic decreased [None]
